FAERS Safety Report 4409777-2 (Version None)
Quarter: 2004Q3

REPORT INFORMATION
  Report Type: 
  Country: None (occurrence: None)
  Receive Date: 20040723
  Receipt Date: 20040708
  Transmission Date: 20050211
  Serious: Yes (Hospitalization)
  Sender: FDA-Public Use
  Company Number: 198117

PATIENT
  Age: 70 Year
  Sex: Female
  Weight: 66.6788 kg

DRUGS (4)
  1. AVONEX [Suspect]
     Indication: MULTIPLE SCLEROSIS
     Dosage: 30 MCG QW IM
     Route: 030
     Dates: start: 19991101, end: 20030101
  2. AVONEX [Suspect]
     Indication: MULTIPLE SCLEROSIS
     Dosage: 30 MCG QW IM
     Route: 030
     Dates: start: 20030101
  3. VICODIN [Concomitant]
  4. ANTIHYPERTENSIVE (NOS) [Concomitant]

REACTIONS (6)
  - ACCIDENT [None]
  - ARTHROPATHY [None]
  - DIABETES MELLITUS [None]
  - FALL [None]
  - INFLUENZA LIKE ILLNESS [None]
  - OBESITY [None]
